FAERS Safety Report 18655682 (Version 1)
Quarter: 2020Q4

REPORT INFORMATION
  Report Type: Spontaneous
  Country: US (occurrence: US)
  Receive Date: 20201223
  Receipt Date: 20201223
  Transmission Date: 20210114
  Serious: No
  Sender: FDA-Public Use
  Company Number: US-ASTRAZENECA-2020SF62270

PATIENT
  Age: 25596 Day
  Sex: Male
  Weight: 103 kg

DRUGS (1)
  1. BYDUREON BCISE [Suspect]
     Active Substance: EXENATIDE
     Indication: DIABETES MELLITUS
     Route: 058
     Dates: start: 2018

REACTIONS (5)
  - Device leakage [Unknown]
  - Injection site haemorrhage [Unknown]
  - Poor quality device used [Unknown]
  - Drug delivery system issue [Unknown]
  - Incorrect dose administered [Unknown]

NARRATIVE: CASE EVENT DATE: 20201201
